FAERS Safety Report 6007858-3 (Version None)
Quarter: 2008Q4

REPORT INFORMATION
  Report Type: 
  Country: None (occurrence: None)
  Receive Date: 20081217
  Receipt Date: 20080703
  Transmission Date: 20090506
  Serious: No
  Sender: FDA-Public Use
  Company Number: US-ASTRAZENECA-2008UW13471

PATIENT
  Age: 54 Year
  Sex: Female
  Weight: 72.6 kg

DRUGS (5)
  1. CRESTOR [Suspect]
     Indication: HYPERTRIGLYCERIDAEMIA
     Route: 048
     Dates: start: 20070101
  2. ACTONEL [Concomitant]
  3. VAGIFEM [Concomitant]
  4. SINGULAIR [Concomitant]
  5. TYLENOL (CAPLET) [Concomitant]

REACTIONS (5)
  - ABNORMAL FAECES [None]
  - BOWEL MOVEMENT IRREGULARITY [None]
  - FREQUENT BOWEL MOVEMENTS [None]
  - OSTEOPOROSIS [None]
  - WEIGHT LOSS POOR [None]
